FAERS Safety Report 8343266-8 (Version None)
Quarter: 2012Q2

REPORT INFORMATION
  Report Type: 
  Country: None (occurrence: None)
  Receive Date: 20120508
  Receipt Date: 20120430
  Transmission Date: 20120825
  Serious: Yes (Hospitalization)
  Sender: FDA-Public Use
  Company Number: US-BAYER-2012-015112

PATIENT
  Age: 44 Year
  Sex: Female

DRUGS (8)
  1. YASMIN [Suspect]
     Indication: ACNE
     Dosage: UNK
     Dates: start: 20070801
  2. IRON [Concomitant]
  3. YAZ [Suspect]
     Indication: ACNE
     Dosage: UNK
     Dates: start: 20070801
  4. ROXICET [Concomitant]
     Dosage: 5/325, 1 TO 2 TABLETS Q4 PRN
  5. FAMOTIDINE [Concomitant]
     Dosage: 20 MG, UNK
  6. VITAMIN TAB [Concomitant]
  7. PERCOCET [Concomitant]
     Dosage: 325/5, 1 TO 2 EVERY 4 HOURS PRN
  8. VITAMIN B-12 [Concomitant]

REACTIONS (3)
  - INJURY [None]
  - PULMONARY EMBOLISM [None]
  - PAIN [None]
